FAERS Safety Report 21355758 (Version 1)
Quarter: 2022Q3

REPORT INFORMATION
  Report Type: Spontaneous
  Country: US (occurrence: US)
  Receive Date: 20220920
  Receipt Date: 20220920
  Transmission Date: 20221027
  Serious: No
  Sender: FDA-Public Use
  Company Number: US-THERAPEUTICSMD-2021TMD02835

PATIENT
  Sex: Female

DRUGS (2)
  1. ANNOVERA [Suspect]
     Active Substance: ETHINYL ESTRADIOL\SEGESTERONE ACETATE
     Dosage: 1 RING, TAKEN OUT DAILY AT MIDNIGHT
     Route: 067
  2. ANNOVERA [Suspect]
     Active Substance: ETHINYL ESTRADIOL\SEGESTERONE ACETATE
     Dosage: 1 RING, TAKEN OUT DAILY AT BETWEEN 8-10 AM
     Route: 067

REACTIONS (2)
  - Pain [Recovering/Resolving]
  - Intentional product misuse [Not Recovered/Not Resolved]
